FAERS Safety Report 6591164-2 (Version None)
Quarter: 2010Q1

REPORT INFORMATION
  Report Type: 
  Country: None (occurrence: None)
  Receive Date: 20100219
  Receipt Date: 20100211
  Transmission Date: 20100710
  Serious: Yes (Other)
  Sender: FDA-Public Use
  Company Number: GB-ELI_LILLY_AND_COMPANY-GB201002003499

PATIENT
  Sex: Female

DRUGS (1)
  1. XIGRIS [Suspect]
     Indication: ARTHRITIS BACTERIAL
     Dosage: UNK, UNKNOWN

REACTIONS (2)
  - HAEMORRHAGE INTRACRANIAL [None]
  - PNEUMONIA [None]
